FAERS Safety Report 15139876 (Version 3)
Quarter: 2018Q4

REPORT INFORMATION
  Report Type: Spontaneous
  Country: US (occurrence: US)
  Receive Date: 20180713
  Receipt Date: 20181022
  Transmission Date: 20190204
  Serious: Yes (Other)
  Sender: FDA-Public Use
  Company Number: US-SA-2018SA188288

PATIENT
  Age: 63 Year
  Sex: Female
  Weight: 99.77 kg

DRUGS (1)
  1. KEVZARA [Suspect]
     Active Substance: SARILUMAB
     Dosage: 200 MG, QOW
     Route: 058
     Dates: start: 20180614, end: 20180921

REACTIONS (2)
  - Cellulitis [Unknown]
  - Fungal infection [Unknown]
